FAERS Safety Report 9387021 (Version 1)
Quarter: 2013Q3

REPORT INFORMATION
  Report Type: Spontaneous
  Country: DE (occurrence: None)
  Receive Date: 20130702
  Receipt Date: 20130702
  Transmission Date: 20140515
  Serious: Yes (Life-Threatening, Hospitalization)
  Sender: FDA-Public Use
  Company Number: AUR-APL-2013-05388

PATIENT
  Age: 59 Year
  Sex: Female
  Weight: 170 kg

DRUGS (3)
  1. METFORMIN [Suspect]
     Indication: PRODUCT USED FOR UNKNOWN INDICATION
     Dosage: 3 GM (1 GM,3 IN 1 D),ORAL
     Route: 048
     Dates: end: 20130226
  2. ATENOLOL (ATENOLOL) [Concomitant]
  3. EUTHYROX (LEVOTHYROXINE SODIUM)(TABLET)(LEVOTHYROXINE SODIUM) [Concomitant]

REACTIONS (6)
  - Dehydration [None]
  - Diarrhoea [None]
  - Lactic acidosis [None]
  - Renal failure [None]
  - Shock [None]
  - Apparent life threatening event [None]
